FAERS Safety Report 16074357 (Version 2)
Quarter: 2023Q1

REPORT INFORMATION
  Report Type: Spontaneous
  Country: US (occurrence: None)
  Receive Date: 20190314
  Receipt Date: 20230222
  Transmission Date: 20230417
  Serious: Yes (Other)
  Sender: FDA-Public Use
  Company Number: 2018SF21692

PATIENT
  Age: 20434 Day
  Sex: Female

DRUGS (34)
  1. NEXIUM [Suspect]
     Active Substance: ESOMEPRAZOLE MAGNESIUM
     Indication: Gastrooesophageal reflux disease
     Route: 048
     Dates: start: 20090413, end: 20150702
  2. NEXIUM [Suspect]
     Active Substance: ESOMEPRAZOLE MAGNESIUM
     Indication: Gastrooesophageal reflux disease
     Route: 048
     Dates: start: 200904, end: 201612
  3. NEXIUM [Suspect]
     Active Substance: ESOMEPRAZOLE MAGNESIUM
     Indication: Gastrooesophageal reflux disease
     Route: 048
     Dates: start: 2009, end: 2015
  4. NEXIUM [Suspect]
     Active Substance: ESOMEPRAZOLE MAGNESIUM
     Indication: Gastrooesophageal reflux disease
     Route: 048
     Dates: start: 2009, end: 2017
  5. SIMVASTATIN [Concomitant]
     Active Substance: SIMVASTATIN
  6. NAPROXEN [Concomitant]
     Active Substance: NAPROXEN
  7. DIAZEPAM [Concomitant]
     Active Substance: DIAZEPAM
  8. ISOSORB [Concomitant]
  9. CIPROFLOXACIN [Concomitant]
     Active Substance: CIPROFLOXACIN
  10. METOPROLOL [Concomitant]
     Active Substance: METOPROLOL
  11. PLAVIX [Concomitant]
     Active Substance: CLOPIDOGREL BISULFATE
  12. ZOLPIDEM [Concomitant]
     Active Substance: ZOLPIDEM TARTRATE
  13. NOVOLOG [Concomitant]
     Active Substance: INSULIN ASPART
  14. FUROSEMIDE [Concomitant]
     Active Substance: FUROSEMIDE
  15. DORZOLAMIDE [Concomitant]
     Active Substance: DORZOLAMIDE
  16. KETOROLAC [Concomitant]
     Active Substance: KETOROLAC TROMETHAMINE
  17. BUSPIRONE [Concomitant]
     Active Substance: BUSPIRONE HYDROCHLORIDE
  18. DIOVAN [Concomitant]
     Active Substance: VALSARTAN
  19. CRESTOR [Concomitant]
     Active Substance: ROSUVASTATIN CALCIUM
  20. GABAPENTIN [Concomitant]
     Active Substance: GABAPENTIN
  21. COMBIGAN [Concomitant]
     Active Substance: BRIMONIDINE TARTRATE\TIMOLOL MALEATE
  22. METOLAZONE [Concomitant]
     Active Substance: METOLAZONE
  23. CEFADROXIL [Concomitant]
     Active Substance: CEFADROXIL
  24. ALPRAZOLAM [Concomitant]
     Active Substance: ALPRAZOLAM
  25. MIRTAZAPINE [Concomitant]
     Active Substance: MIRTAZAPINE
  26. PROMETHAZINE [Concomitant]
     Active Substance: PROMETHAZINE HYDROCHLORIDE
  27. LIDODERM [Concomitant]
     Active Substance: LIDOCAINE
  28. AMOXICILLIN [Concomitant]
     Active Substance: AMOXICILLIN
  29. LUMIGAN [Concomitant]
     Active Substance: BIMATOPROST
  30. ATROPINE [Concomitant]
     Active Substance: ATROPINE
  31. CLINDAMYCIN [Concomitant]
     Active Substance: CLINDAMYCIN
  32. CODEINE [Concomitant]
     Active Substance: CODEINE
  33. LYRICA [Concomitant]
     Active Substance: PREGABALIN
  34. ACETIC ACID [Concomitant]
     Active Substance: ACETIC ACID

REACTIONS (4)
  - Acute kidney injury [Unknown]
  - Chronic kidney disease [Unknown]
  - End stage renal disease [Unknown]
  - Renal injury [Unknown]

NARRATIVE: CASE EVENT DATE: 20110913
